FAERS Safety Report 4511890-6 (Version None)
Quarter: 2004Q4

REPORT INFORMATION
  Report Type: 
  Country: None (occurrence: None)
  Receive Date: 20041129
  Receipt Date: 20041021
  Transmission Date: 20050328
  Serious: Yes (Life-Threatening, Hospitalization)
  Sender: FDA-Public Use
  Company Number: US-MERCK-0410USA03353

PATIENT
  Age: 57 Year
  Sex: Male

DRUGS (3)
  1. VIOXX [Suspect]
     Indication: ARTHRALGIA
     Route: 048
     Dates: start: 20030101, end: 20040901
  2. [THERAPY UNSPECIFIED] [Concomitant]
     Route: 065
  3. [THERAPY UNSPECIFIED] [Concomitant]
     Route: 065

REACTIONS (6)
  - ANAEMIA [None]
  - CARDIAC FAILURE CONGESTIVE [None]
  - DYSPNOEA [None]
  - RECTAL HAEMORRHAGE [None]
  - REFUSAL OF TREATMENT BY PATIENT [None]
  - TREATMENT NONCOMPLIANCE [None]
